FAERS Safety Report 13164048 (Version 2)
Quarter: 2017Q1

REPORT INFORMATION
  Report Type: Spontaneous
  Country: CZ (occurrence: CZ)
  Receive Date: 20170130
  Receipt Date: 20170309
  Transmission Date: 20170428
  Serious: Yes (Hospitalization, Other)
  Sender: FDA-Public Use
  Company Number: CZ-TEVA-732469ROM

PATIENT
  Age: 52 Year
  Sex: Female

DRUGS (1)
  1. AMOXICILLIN. [Suspect]
     Active Substance: AMOXICILLIN
     Indication: GASTROINTESTINAL VIRAL INFECTION
     Dosage: 2 GRAM DAILY;
     Route: 048

REACTIONS (7)
  - Ventricular extrasystoles [Recovered/Resolved]
  - Syncope [Recovered/Resolved]
  - Hypokalaemia [Recovered/Resolved]
  - Atrial fibrillation [Recovered/Resolved]
  - Electrocardiogram QT prolonged [Recovered/Resolved]
  - Loss of consciousness [Recovered/Resolved]
  - Ventricular tachycardia [Recovered/Resolved]
